FAERS Safety Report 4947677-X (Version None)
Quarter: 2006Q1

REPORT INFORMATION
  Report Type: 
  Country: None (occurrence: None)
  Receive Date: 20060310
  Receipt Date: 20060222
  Transmission Date: 20060701
  Serious: Yes (Other)
  Sender: FDA-Public Use
  Company Number: 6018605

PATIENT
  Sex: Male

DRUGS (1)
  1. NIASPAN [Suspect]

REACTIONS (2)
  - ACANTHOSIS NIGRICANS [None]
  - PULMONARY FIBROSIS [None]
